FAERS Safety Report 25373532 (Version 2)
Quarter: 2025Q2

REPORT INFORMATION
  Report Type: Spontaneous
  Country: RU (occurrence: RU)
  Receive Date: 20250529
  Receipt Date: 20250609
  Transmission Date: 20250716
  Serious: Yes (Other)
  Sender: TAKEDA
  Company Number: RU-LUNDBECK-DKLU4014805

PATIENT
  Age: 52 Year
  Sex: Female

DRUGS (2)
  1. BRINTELLIX [Suspect]
     Active Substance: VORTIOXETINE HYDROBROMIDE
     Indication: Depression
     Dosage: 10 MILLIGRAM, QD
     Dates: start: 20240703
  2. BRINTELLIX [Suspect]
     Active Substance: VORTIOXETINE HYDROBROMIDE
     Dosage: UNK UNK, QOD
     Dates: end: 20250421

REACTIONS (23)
  - Mental impairment [Not Recovered/Not Resolved]
  - Abdominal pain upper [Recovered/Resolved]
  - Urinary incontinence [Recovered/Resolved]
  - Vision blurred [Unknown]
  - Nervousness [Unknown]
  - Tearfulness [Not Recovered/Not Resolved]
  - Apathy [Unknown]
  - Anxiety [Unknown]
  - Panic attack [Recovered/Resolved]
  - Pain [Unknown]
  - Palpitations [Unknown]
  - Inappropriate schedule of product administration [Unknown]
  - Therapy cessation [Unknown]
  - Dyspepsia [Recovered/Resolved]
  - Mood swings [Recovering/Resolving]
  - Haemorrhage [Unknown]
  - Hyperhidrosis [Unknown]
  - Diarrhoea [Unknown]
  - Abnormal dreams [Unknown]
  - Dizziness [Unknown]
  - Irritability [Unknown]
  - Aggression [Unknown]
  - Headache [Unknown]

NARRATIVE: CASE EVENT DATE: 20250425
